FAERS Safety Report 5153617-3 (Version None)
Quarter: 2006Q4

REPORT INFORMATION
  Report Type: 
  Country: None (occurrence: None)
  Receive Date: 20061113
  Receipt Date: 20061101
  Transmission Date: 20070319
  Serious: Yes (Hospitalization, Other)
  Sender: FDA-Public Use
  Company Number: 2006134496

PATIENT
  Sex: Male
  Weight: 90.7194 kg

DRUGS (3)
  1. LIPITOR [Suspect]
     Indication: BLOOD CHOLESTEROL INCREASED
     Dosage: 10 MG (10 MG, 1 IN 1 D)
     Dates: start: 19970101
  2. VIAGRA [Suspect]
     Indication: LIBIDO DECREASED
     Dosage: (100  MG)/5 YEARS AGO
  3. ALTACE [Concomitant]

REACTIONS (3)
  - DRUG INEFFECTIVE [None]
  - MYOCARDIAL INFARCTION [None]
  - SEXUAL DYSFUNCTION [None]
